FAERS Safety Report 6522055-0 (Version None)
Quarter: 2009Q4

REPORT INFORMATION
  Report Type: 
  Country: None (occurrence: None)
  Receive Date: 20091230
  Receipt Date: 20091223
  Transmission Date: 20100525
  Serious: No
  Sender: FDA-Public Use
  Company Number: US-ROXANE LABORATORIES, INC.-2009-RO-01244RO

PATIENT
  Sex: Female
  Weight: 22 kg

DRUGS (5)
  1. CALCITRIOL [Suspect]
     Indication: RICKETS
     Dosage: 0.75 MCG
     Route: 048
     Dates: start: 20061213
  2. CALCITRIOL [Suspect]
     Dosage: 0.5 MCG
     Route: 048
     Dates: start: 20091125
  3. POTASSIUM PHOSPHATES [Suspect]
     Indication: RICKETS
     Route: 048
     Dates: start: 20080225
  4. POTASSIUM PHOSPHATES [Suspect]
     Dosage: 3000 MG
     Route: 048
  5. POTASSIUM PHOSPHATES [Suspect]
     Dosage: 2000 MG
     Route: 048
     Dates: start: 20091210

REACTIONS (1)
  - NEPHROCALCINOSIS [None]
